FAERS Safety Report 9999109 (Version 2)
Quarter: 2014Q1

REPORT INFORMATION
  Report Type: Spontaneous
  Country: IT (occurrence: None)
  Receive Date: 20140310
  Receipt Date: 20140311
  Transmission Date: 20141002
  Serious: Yes (Hospitalization)
  Sender: FDA-Public Use
  Company Number: AE-SPE-2014-002

PATIENT
  Age: 26 Year
  Sex: Female

DRUGS (2)
  1. GIASION [Suspect]
     Indication: PNEUMONIA
     Dates: start: 20131108, end: 20131109
  2. LEVOFLOXACIN [Suspect]
     Indication: PNEUMONITIS
     Route: 048
     Dates: start: 20131109, end: 20131109

REACTIONS (4)
  - Dyspnoea [None]
  - Urticaria [None]
  - Hypersensitivity [None]
  - Pneumonitis [None]
